FAERS Safety Report 6445023-6 (Version None)
Quarter: 2009Q4

REPORT INFORMATION
  Report Type: 
  Country: None (occurrence: None)
  Receive Date: 20091118
  Receipt Date: 20091109
  Transmission Date: 20100525
  Serious: Yes (Hospitalization)
  Sender: FDA-Public Use
  Company Number: JP-MERCK-0911USA02341

PATIENT
  Age: 75 Year
  Sex: Female

DRUGS (4)
  1. FOSAMAX [Suspect]
     Indication: OSTEOPOROSIS
     Route: 048
     Dates: start: 20090223
  2. RIKKUNSHI-TO [Concomitant]
     Route: 048
  3. EVOXAC [Concomitant]
     Indication: DRY MOUTH
     Route: 048
     Dates: start: 20060801
  4. GLUCOSAMINE [Suspect]
     Route: 065

REACTIONS (1)
  - HEPATITIS ACUTE [None]
